FAERS Safety Report 7388215-4 (Version None)
Quarter: 2011Q1

REPORT INFORMATION
  Report Type: 
  Country: None (occurrence: None)
  Receive Date: 20110329
  Receipt Date: 20110329
  Transmission Date: 20110831
  Serious: No
  Sender: FDA-Public Use
  Company Number: None

PATIENT
  Sex: Female
  Weight: 113.3993 kg

DRUGS (2)
  1. LAMICTAL ODT [Suspect]
     Indication: BIPOLAR DISORDER
     Dosage: 25 -14 DAYS- 50 MG  14 DAY- 100 MG MOUTH  STARTER KIT- 12-2-10 150 MG ON 1-12-11
     Route: 048
     Dates: start: 20101202
  2. LAMICTAL ODT [Suspect]
     Indication: BIPOLAR DISORDER
     Dosage: 25 -14 DAYS- 50 MG  14 DAY- 100 MG MOUTH  STARTER KIT- 12-2-10 150 MG ON 1-12-11
     Route: 048
     Dates: start: 20110112

REACTIONS (3)
  - PRURITUS [None]
  - RASH [None]
  - PRODUCT SUBSTITUTION ISSUE [None]
